FAERS Safety Report 4516168-2 (Version None)
Quarter: 2004Q4

REPORT INFORMATION
  Report Type: 
  Country: None (occurrence: None)
  Receive Date: 20041201
  Receipt Date: 20041201
  Transmission Date: 20050328
  Serious: Yes (Hospitalization)
  Sender: FDA-Public Use
  Company Number: None

PATIENT
  Age: 65 Year
  Sex: Female

DRUGS (15)
  1. PANGLOBULIN [Suspect]
     Indication: HAEMOLYTIC ANAEMIA
     Dosage: 100 GRAMS IV DAILY
     Route: 042
     Dates: start: 20040824, end: 20040829
  2. PANGLOBULIN [Suspect]
  3. TYLENOL (CAPLET) [Concomitant]
  4. DOLASETRON [Concomitant]
  5. FOLIC ACID [Concomitant]
  6. NOVOLO 9 MIX [Concomitant]
  7. PROTONIX [Concomitant]
  8. ATIVAN [Concomitant]
  9. METFORMIN HCL [Concomitant]
  10. LOPRESSOR [Concomitant]
  11. PREDNISONE [Concomitant]
  12. PERCOCET [Concomitant]
  13. PRAVACHOL [Concomitant]
  14. VERAPAMIL [Concomitant]
  15. PHENERGAN [Concomitant]

REACTIONS (6)
  - CONDITION AGGRAVATED [None]
  - DISEASE PROGRESSION [None]
  - GENERALISED OEDEMA [None]
  - HYPOTENSION [None]
  - RENAL FAILURE ACUTE [None]
  - RENAL TUBULAR NECROSIS [None]
